FAERS Safety Report 9525819 (Version 1)
Quarter: 2013Q3

REPORT INFORMATION
  Report Type: Spontaneous
  Country: ES (occurrence: ES)
  Receive Date: 20130916
  Receipt Date: 20130916
  Transmission Date: 20140515
  Serious: Yes (Hospitalization)
  Sender: FDA-Public Use
  Company Number: ES-SANOFI-AVENTIS-2013SA090729

PATIENT
  Age: 90 Year
  Sex: Female
  Weight: 61 kg

DRUGS (1)
  1. CLEXANE [Suspect]
     Indication: ATRIAL FIBRILLATION
     Dosage: EVERY 24 HOURS
     Route: 058
     Dates: start: 20130606, end: 20130901

REACTIONS (2)
  - Skin necrosis [Recovering/Resolving]
  - Medication error [Unknown]
